FAERS Safety Report 8451591-5 (Version None)
Quarter: 2012Q2

REPORT INFORMATION
  Report Type: 
  Country: None (occurrence: None)
  Receive Date: 20120620
  Receipt Date: 20120604
  Transmission Date: 20120825
  Serious: Yes (Hospitalization)
  Sender: FDA-Public Use
  Company Number: DE-TEVA-342189GER

PATIENT
  Sex: Male

DRUGS (1)
  1. MORPHINE [Suspect]
     Indication: THERAPEUTIC HYPOTHERMIA
     Dosage: 15 MICROG/KG/H
     Route: 041

REACTIONS (2)
  - URINARY RETENTION [None]
  - VENOUS OCCLUSION [None]
